FAERS Safety Report 11856744 (Version 1)
Quarter: 2015Q4

REPORT INFORMATION
  Report Type: Report from Study
  Country: JP (occurrence: JP)
  Receive Date: 20151221
  Receipt Date: 20151221
  Transmission Date: 20160305
  Serious: Yes (Life-Threatening, Other)
  Sender: FDA-Public Use
  Company Number: JP-SA-THYM-1002139

PATIENT
  Age: 13 Year
  Sex: Male
  Weight: 44 kg

DRUGS (24)
  1. THYMOGLOBULINE [Suspect]
     Active Substance: LAPINE T-LYMPHOCYTE IMMUNE GLOBULIN
     Indication: BONE MARROW CONDITIONING REGIMEN
     Dosage: 100 MG, QD
     Route: 042
     Dates: start: 20090815, end: 20090816
  2. FLUDARABINE PHOSPHATE. [Suspect]
     Active Substance: FLUDARABINE PHOSPHATE
     Indication: BONE MARROW CONDITIONING REGIMEN
     Dosage: 40 MG, QD
     Route: 042
     Dates: start: 20090815, end: 20090818
  3. RAMOSETRON HYDROCHLORIDE [Concomitant]
     Active Substance: RAMOSETRON HYDROCHLORIDE
     Indication: PROPHYLAXIS OF NAUSEA AND VOMITING
     Dosage: UNK
     Dates: start: 20090815, end: 20090819
  4. MICAFUNGIN SODIUM [Concomitant]
     Active Substance: MICAFUNGIN SODIUM
     Indication: ANTIFUNGAL PROPHYLAXIS
     Dosage: UNK
     Dates: start: 20090713, end: 20090917
  5. METOCLOPRAMIDE. [Concomitant]
     Active Substance: METOCLOPRAMIDE
     Indication: PROPHYLAXIS OF NAUSEA AND VOMITING
     Dosage: UNK
     Dates: start: 20090720, end: 20091023
  6. CYTARABINE. [Concomitant]
     Active Substance: CYTARABINE
     Indication: BONE MARROW CONDITIONING REGIMEN
     Dosage: UNK
     Route: 065
  7. FILGRASTIM [Concomitant]
     Active Substance: FILGRASTIM
     Indication: COLONY STIMULATING FACTOR THERAPY
     Dosage: UNK
     Dates: start: 20090824, end: 20090920
  8. CYSTEINE/GLYCYRRHIZIC ACID/AMINOACETIC ACID [Concomitant]
     Indication: LIVER DISORDER
     Dosage: UNK
     Dates: start: 20090812, end: 20090909
  9. VALACICLOVIR HYDROCHLORIDE [Concomitant]
     Active Substance: VALACYCLOVIR HYDROCHLORIDE
     Indication: ANTIVIRAL PROPHYLAXIS
     Dosage: UNK
     Dates: start: 20091119
  10. GANCICLOVIR. [Concomitant]
     Active Substance: GANCICLOVIR
     Indication: ANTIVIRAL PROPHYLAXIS
     Dosage: UNK
     Dates: start: 20090801, end: 20091108
  11. MESNA. [Concomitant]
     Active Substance: MESNA
     Indication: PROPHYLAXIS
     Dosage: UNK
     Dates: start: 20090817, end: 20090818
  12. TACROLIMUS. [Concomitant]
     Active Substance: TACROLIMUS
     Indication: PROPHYLAXIS AGAINST GRAFT VERSUS HOST DISEASE
     Dosage: UNK
     Dates: start: 20090819
  13. MORPHINE HYDROCHLORIDE [Concomitant]
     Active Substance: MORPHINE HYDROCHLORIDE
     Indication: PAIN PROPHYLAXIS
     Dosage: UNK
     Dates: start: 20090720, end: 20091023
  14. ALPROSTADIL. [Concomitant]
     Active Substance: ALPROSTADIL
     Indication: PROPHYLAXIS
     Dosage: UNK
     Dates: start: 20090705, end: 20090824
  15. REBAMIPIDE [Concomitant]
     Active Substance: REBAMIPIDE
     Indication: GASTRITIS PROPHYLAXIS
     Dosage: UNK
     Dates: start: 20091018, end: 20100107
  16. CYCLOPHOSPHAMIDE. [Concomitant]
     Active Substance: CYCLOPHOSPHAMIDE
     Indication: BONE MARROW CONDITIONING REGIMEN
     Dosage: UNK
     Dates: start: 20090817, end: 20090818
  17. HEPARIN SODIUM. [Concomitant]
     Active Substance: HEPARIN SODIUM
     Indication: PROPHYLAXIS
     Dosage: UNK
     Dates: start: 20090705, end: 20090824
  18. METHYLPREDNISOLONE SODIUM SUCCINATE. [Concomitant]
     Active Substance: METHYLPREDNISOLONE SODIUM SUCCINATE
     Indication: PROPHYLAXIS
     Dosage: UNK
     Dates: start: 20090808, end: 20091005
  19. PREDNISOLONE. [Concomitant]
     Active Substance: PREDNISOLONE
     Indication: PROPHYLAXIS AGAINST GRAFT VERSUS HOST DISEASE
     Dosage: UNK
     Dates: start: 20091006, end: 20091202
  20. ETOPOSIDE. [Concomitant]
     Active Substance: ETOPOSIDE
     Indication: BONE MARROW CONDITIONING REGIMEN
     Dosage: UNK
     Dates: start: 20090819, end: 20090819
  21. PIRENZEPINE [Concomitant]
     Active Substance: PIRENZEPINE
     Indication: PROPHYLAXIS AGAINST GASTROINTESTINAL ULCER
     Dosage: UNK
     Dates: start: 20090716, end: 20091017
  22. METHYLPREDNISOLONE SODIUM SUCCINATE. [Concomitant]
     Active Substance: METHYLPREDNISOLONE SODIUM SUCCINATE
     Indication: PROPHYLAXIS AGAINST GRAFT VERSUS HOST DISEASE
     Dosage: UNK
     Dates: start: 20090808, end: 20091005
  23. FUROSEMIDE. [Concomitant]
     Active Substance: FUROSEMIDE
     Indication: PROPHYLAXIS
     Dosage: UNK
     Dates: start: 20090818, end: 20090818
  24. TRIMETHOPRIM/SULFAMETHOXAZOLE [Concomitant]
     Indication: ANTIFUNGAL PROPHYLAXIS
     Dosage: UNK
     Dates: start: 20090930

REACTIONS (12)
  - Staphylococcal sepsis [Recovered/Resolved]
  - Cytomegalovirus viraemia [Recovered/Resolved]
  - Neutropenia [Recovered/Resolved]
  - Staphylococcal infection [Recovered/Resolved]
  - Headache [Recovered/Resolved]
  - Aspergillus infection [Recovered/Resolved]
  - Intraventricular haemorrhage [Recovered/Resolved]
  - Diarrhoea [Recovered/Resolved]
  - Insomnia [Recovered/Resolved]
  - Pruritus [Recovering/Resolving]
  - Cystitis viral [Recovered/Resolved]
  - Disseminated intravascular coagulation [Recovered/Resolved]

NARRATIVE: CASE EVENT DATE: 20090821
